FAERS Safety Report 20566880 (Version 5)
Quarter: 2023Q4

REPORT INFORMATION
  Report Type: Report from Study
  Country: US (occurrence: US)
  Receive Date: 20220308
  Receipt Date: 20231124
  Transmission Date: 20240110
  Serious: Yes (Other)
  Sender: FDA-Public Use
  Company Number: US-TAKEDA-US202033374

PATIENT
  Age: 71 Year
  Sex: Male

DRUGS (2)
  1. HUMAN IMMUNOGLOBULIN G [Suspect]
     Active Substance: HUMAN IMMUNOGLOBULIN G
     Indication: Primary immunodeficiency syndrome
     Dosage: 23 GRAM, 2/MONTH
     Route: 065
  2. HUMAN IMMUNOGLOBULIN G [Suspect]
     Active Substance: HUMAN IMMUNOGLOBULIN G
     Dosage: 23 GRAM, Q2WEEKS
     Route: 065

REACTIONS (11)
  - Pulmonary fibrosis [Not Recovered/Not Resolved]
  - Hyperthyroidism [Unknown]
  - Hypothyroidism [Unknown]
  - Polyneuropathy [Unknown]
  - Blood pressure decreased [Unknown]
  - Pulmonary function test decreased [Not Recovered/Not Resolved]
  - Heart rate decreased [Unknown]
  - Renal disorder [Recovering/Resolving]
  - Lymph node pain [Unknown]
  - Weight decreased [Unknown]
  - Lymphadenopathy [Unknown]

NARRATIVE: CASE EVENT DATE: 20231121
